FAERS Safety Report 4884215-4 (Version None)
Quarter: 2005Q4

REPORT INFORMATION
  Report Type: 
  Country: None (occurrence: None)
  Receive Date: 20051201
  Receipt Date: 20050902
  Transmission Date: 20060501
  Serious: No
  Sender: FDA-Public Use
  Company Number: 2005PV001818

PATIENT
  Age: 44 Year
  Sex: Female

DRUGS (6)
  1. BYETTA [Suspect]
     Indication: DIABETES MELLITUS NON-INSULIN-DEPENDENT
     Dosage: 10 MCG;BID;SC
     Route: 058
     Dates: start: 20050801
  2. AVANDIA [Concomitant]
  3. AMARYL [Concomitant]
  4. METFORMIN [Concomitant]
  5. SYNTHROID [Concomitant]
  6. DETROL [Concomitant]

REACTIONS (1)
  - INJECTION SITE PAIN [None]
